FAERS Safety Report 4457264-8 (Version None)
Quarter: 2004Q3

REPORT INFORMATION
  Report Type: 
  Country: None (occurrence: None)
  Receive Date: 20040922
  Receipt Date: 20040917
  Transmission Date: 20050211
  Serious: Yes (Death, Life-Threatening)
  Sender: FDA-Public Use
  Company Number: HQWYE831415MAR04

PATIENT
  Age: 54 Year
  Sex: Male
  Weight: 94.7 kg

DRUGS (7)
  1. MYLOTARG [Suspect]
     Indication: ACUTE MYELOID LEUKAEMIA
     Dosage: 21 MG 1X PER 1 DAY, INTRAVENOUS
     Route: 042
     Dates: start: 20040227, end: 20040227
  2. VORICONAZOLE (VORICONAZOLE) [Concomitant]
  3. ACYCLOVIR [Concomitant]
  4. AZTREONAM (AZTREONAM) [Concomitant]
  5. VANCOMYCIN [Concomitant]
  6. CIPROFLOXACIN [Concomitant]
  7. CANCIDAS [Concomitant]

REACTIONS (6)
  - BLAST CELL COUNT INCREASED [None]
  - CARDIO-RESPIRATORY ARREST [None]
  - CHOLECYSTITIS ACUTE [None]
  - CHOLELITHIASIS [None]
  - SEPTIC SHOCK [None]
  - WEIGHT INCREASED [None]
